FAERS Safety Report 11515781 (Version 1)
Quarter: 2015Q3

REPORT INFORMATION
  Report Type: Spontaneous
  Country: US (occurrence: US)
  Receive Date: 20150916
  Receipt Date: 20150916
  Transmission Date: 20151125
  Serious: No
  Sender: FDA-Public Use
  Company Number: US-BAUSCH-BL-2015-011381

PATIENT
  Age: 16 Month

DRUGS (1)
  1. DIAZEPAM. [Suspect]
     Active Substance: DIAZEPAM
     Indication: OFF LABEL USE

REACTIONS (3)
  - Off label use [Unknown]
  - Drug prescribing error [Unknown]
  - No adverse event [Unknown]
